FAERS Safety Report 23918591 (Version 1)
Quarter: 2024Q2

REPORT INFORMATION
  Report Type: Spontaneous
  Country: US (occurrence: US)
  Receive Date: 20240530
  Receipt Date: 20240530
  Transmission Date: 20240716
  Serious: Yes (Hospitalization, Other)
  Sender: FDA-Public Use
  Company Number: US-SA-SAC20240528000245

PATIENT
  Age: 62 Year
  Sex: Male

DRUGS (1)
  1. FABRAZYME [Suspect]
     Active Substance: AGALSIDASE BETA
     Indication: Fabry^s disease
     Dosage: UNK UNK, QW (INFUSE 70MG OVER 2 HOURS ALTERNATING WITH 40MG OVER 1.5 HOURS INTRAVENOUSLY EVERY WEEK
     Route: 042
     Dates: start: 202209

REACTIONS (3)
  - Cardiac disorder [Unknown]
  - Apnoea [Unknown]
  - Incorrect product administration duration [Unknown]

NARRATIVE: CASE EVENT DATE: 20240514
